FAERS Safety Report 16661850 (Version 1)
Quarter: 2019Q3

REPORT INFORMATION
  Report Type: Report from Study
  Country: CR (occurrence: CR)
  Receive Date: 20190802
  Receipt Date: 20190802
  Transmission Date: 20191004
  Serious: Yes (Other)
  Sender: FDA-Public Use
  Company Number: PHHY2018CR186422

PATIENT
  Sex: Male
  Weight: 77.1 kg

DRUGS (4)
  1. METFORMIN [Concomitant]
     Active Substance: METFORMIN HYDROCHLORIDE
     Indication: DIABETES MELLITUS
     Dosage: 1 DF, BID 1 TABLET IN THE MORNING AND (1TABLET IN AFTERNOON/NIGHT)
     Route: 048
  2. TASIGNA [Suspect]
     Active Substance: NILOTINIB
     Indication: CHRONIC MYELOID LEUKAEMIA
     Dosage: 2 DF, BID
     Route: 048
  3. METFORMIN [Concomitant]
     Active Substance: METFORMIN HYDROCHLORIDE
     Dosage: 2 DF, QD (500 MG)
  4. INSULIN [Concomitant]
     Active Substance: INSULIN NOS
     Indication: DIABETES MELLITUS
     Dosage: (TWICE DAILY OF 30 DURING THE DAY AND 10 AT NIGHT)
     Route: 065

REACTIONS (7)
  - Diabetes mellitus [Recovering/Resolving]
  - Wrong technique in product usage process [Unknown]
  - Memory impairment [Unknown]
  - Dizziness [Recovered/Resolved]
  - Nausea [Recovered/Resolved]
  - Diabetic eye disease [Recovered/Resolved]
  - Weight decreased [Unknown]
